FAERS Safety Report 9335819 (Version 1)
Quarter: 2013Q2

REPORT INFORMATION
  Report Type: Spontaneous
  Country: FR (occurrence: FR)
  Receive Date: 20130606
  Receipt Date: 20130606
  Transmission Date: 20140414
  Serious: Yes (Other)
  Sender: FDA-Public Use
  Company Number: FR-MERCK-1305FRA017631

PATIENT
  Age: 1 Year
  Sex: Female
  Weight: 9 kg

DRUGS (1)
  1. AERIUS [Suspect]
     Dosage: 2.5 UNK, UNK
     Route: 048
     Dates: start: 20130425

REACTIONS (1)
  - Balance disorder [Recovered/Resolved]
